FAERS Safety Report 7870080-X (Version None)
Quarter: 2011Q4

REPORT INFORMATION
  Report Type: 
  Country: None (occurrence: None)
  Receive Date: 20111028
  Receipt Date: 20110113
  Transmission Date: 20120403
  Serious: No
  Sender: FDA-Public Use
  Company Number: US-AMGEN-USASP2010012320

PATIENT
  Age: 55 Year
  Sex: Female

DRUGS (1)
  1. ENBREL [Suspect]
     Indication: ANKYLOSING SPONDYLITIS
     Dosage: 50 MG, QWK
     Dates: start: 20090714

REACTIONS (10)
  - RED BLOOD CELL COUNT DECREASED [None]
  - MEAN PLATELET VOLUME DECREASED [None]
  - RED CELL DISTRIBUTION WIDTH DECREASED [None]
  - BLOOD UREA INCREASED [None]
  - BLOOD CREATININE INCREASED [None]
  - MEAN CELL VOLUME INCREASED [None]
  - BLOOD TRIGLYCERIDES INCREASED [None]
  - WHITE BLOOD CELL COUNT DECREASED [None]
  - BLOOD CHOLESTEROL INCREASED [None]
  - MEAN CELL HAEMOGLOBIN INCREASED [None]
